FAERS Safety Report 16762459 (Version 1)
Quarter: 2019Q3

REPORT INFORMATION
  Report Type: Spontaneous
  Country: US (occurrence: US)
  Receive Date: 20190831
  Receipt Date: 20190831
  Transmission Date: 20191005
  Serious: Yes (Other)
  Sender: FDA-Public Use
  Company Number: US-MICRO LABS LIMITED-ML2019-02090

PATIENT

DRUGS (3)
  1. MELOXICAM. [Suspect]
     Active Substance: MELOXICAM
  2. TELMISARTAN. [Suspect]
     Active Substance: TELMISARTAN
  3. LERCANIDIPINE [Suspect]
     Active Substance: LERCANIDIPINE

REACTIONS (1)
  - Stevens-Johnson syndrome [Unknown]
